FAERS Safety Report 15243017 (Version 1)
Quarter: 2018Q3

REPORT INFORMATION
  Report Type: Spontaneous
  Country: US (occurrence: US)
  Receive Date: 20180712
  Receipt Date: 20180712
  Transmission Date: 20181010
  Serious: Yes (Disabling, Other)
  Sender: FDA-Public Use
  Company Number: None

PATIENT
  Age: 41 Year
  Sex: Female
  Weight: 70.65 kg

DRUGS (4)
  1. LEVOTHYROXINE. [Concomitant]
     Active Substance: LEVOTHYROXINE
  2. MULTI VITAMINS [Concomitant]
     Active Substance: VITAMINS
  3. BYSTOLIC [Suspect]
     Active Substance: NEBIVOLOL HYDROCHLORIDE
     Indication: TACHYCARDIA
     Dosage: ?          QUANTITY:30 TABLET(S);?
     Route: 048
     Dates: start: 20180709, end: 20180710
  4. DEXILANT [Concomitant]
     Active Substance: DEXLANSOPRAZOLE

REACTIONS (9)
  - Palpitations [None]
  - Hyperhidrosis [None]
  - Chest pain [None]
  - Tremor [None]
  - Angioedema [None]
  - Malaise [None]
  - Anxiety [None]
  - Blood pressure increased [None]
  - Seizure like phenomena [None]

NARRATIVE: CASE EVENT DATE: 20180710
